FAERS Safety Report 4796852-6 (Version None)
Quarter: 2005Q4

REPORT INFORMATION
  Report Type: 
  Country: None (occurrence: None)
  Receive Date: 20051013
  Receipt Date: 20051003
  Transmission Date: 20060501
  Serious: Yes (Other)
  Sender: FDA-Public Use
  Company Number: US-SANOFI-SYNTHELABO-A03200503154

PATIENT
  Sex: Male
  Weight: 83.9 kg

DRUGS (5)
  1. PHISOHEX [Suspect]
     Indication: STAPHYLOCOCCAL INFECTION
     Dosage: UNK
     Route: 061
     Dates: start: 19760101, end: 20051004
  2. ANTACID TAB [Concomitant]
     Dosage: UNK
     Route: 048
  3. OMEPRAZOLE [Concomitant]
     Dosage: UNK
     Route: 048
  4. SIMVASTATIN [Concomitant]
     Dosage: UNK
     Route: 048
  5. LORAZEPAM [Concomitant]
     Dosage: UNK
     Route: 048

REACTIONS (1)
  - PARKINSON'S DISEASE [None]
